FAERS Safety Report 16747528 (Version 1)
Quarter: 2019Q3

REPORT INFORMATION
  Report Type: Spontaneous
  Country: DE (occurrence: DE)
  Receive Date: 20190827
  Receipt Date: 20190827
  Transmission Date: 20191005
  Serious: Yes (Other)
  Sender: FDA-Public Use
  Company Number: DE-TEVA-2019-DE-1097023

PATIENT
  Age: 56 Year
  Sex: Female

DRUGS (4)
  1. AMLODIPIN 5MG [Suspect]
     Active Substance: AMLODIPINE BESYLATE
     Route: 065
  2. RAMIPRIL 5MG [Suspect]
     Active Substance: RAMIPRIL
     Route: 065
  3. BISOPROLOL 2.5MG [Suspect]
     Active Substance: BISOPROLOL
     Route: 065
  4. L-THYROXIN 50 [Suspect]
     Active Substance: LEVOTHYROXINE SODIUM
     Route: 065

REACTIONS (1)
  - Arrhythmia [Not Recovered/Not Resolved]
